FAERS Safety Report 8916782 (Version 1)
Quarter: 2012Q4

REPORT INFORMATION
  Report Type: 
  Country: FR (occurrence: FR)
  Receive Date: 20121120
  Receipt Date: 20121120
  Transmission Date: 20130627
  Serious: Yes (Death, Other)
  Sender: FDA-Public Use
  Company Number: FR-JNJFOC-20121108444

PATIENT

DRUGS (6)
  1. DOXORUBICIN [Suspect]
     Indication: INTESTINAL T-CELL LYMPHOMA
     Dosage: CHOP or MACOP B regimen
     Route: 042
  2. CYCLOPHOSPHAMIDE [Suspect]
     Indication: INTESTINAL T-CELL LYMPHOMA
     Dosage: CHOP or MACOP B regimen
     Route: 065
  3. VINCRISTINE [Suspect]
     Indication: INTESTINAL T-CELL LYMPHOMA
     Dosage: CHOP or MACOP B regimen
     Route: 065
  4. PREDNISOLONE [Suspect]
     Indication: INTESTINAL T-CELL LYMPHOMA
     Dosage: CHOP or MACOP B regimen
     Route: 065
  5. METHOTREXATE [Suspect]
     Indication: INTESTINAL T-CELL LYMPHOMA
     Dosage: MACOP B regimen
     Route: 065
  6. BLEOMYCIN [Suspect]
     Indication: INTESTINAL T-CELL LYMPHOMA
     Dosage: MACOP B regimen
     Route: 065

REACTIONS (2)
  - Death [Fatal]
  - Intestinal obstruction [Unknown]
